FAERS Safety Report 5885321-8 (Version None)
Quarter: 2008Q3

REPORT INFORMATION
  Report Type: 
  Country: None (occurrence: None)
  Receive Date: 20080916
  Receipt Date: 20080731
  Transmission Date: 20090109
  Serious: No
  Sender: FDA-Public Use
  Company Number: BR-EISAI MEDIAL RESEARCH-E3810-02054-SPO-BR

PATIENT
  Age: 33 Year
  Sex: Female

DRUGS (4)
  1. RABEPRAZOLE SODIUM [Suspect]
     Indication: NAUSEA
     Route: 048
  2. RABEPRAZOLE SODIUM [Suspect]
     Indication: VOMITING
  3. RABEPRAZOLE SODIUM [Suspect]
     Indication: APHTHOUS STOMATITIS
  4. NIMESULIDE [Concomitant]

REACTIONS (2)
  - ANXIETY [None]
  - FEAR OF DEATH [None]
